FAERS Safety Report 8162362 (Version 2)
Quarter: 2013Q1

REPORT INFORMATION
  Report Type: Spontaneous
  Country: US (occurrence: US)
  Receive Date: 20110929
  Receipt Date: 20130226
  Transmission Date: 20140127
  Serious: No
  Sender: FDA-Public Use
  Company Number: US-ELI_LILLY_AND_COMPANY-US201109006999

PATIENT
  Sex: Male

DRUGS (4)
  1. CIALIS [Suspect]
     Indication: ERECTILE DYSFUNCTION
     Dosage: 20 MG, PRN
  2. PERCOCET [Concomitant]
     Dosage: UNK
  3. KEFLEX                                  /UNK/ [Concomitant]
     Dosage: UNK
  4. CLINDAMYCIN [Concomitant]
     Dosage: UNK

REACTIONS (3)
  - Dupuytren^s contracture [Recovering/Resolving]
  - Rash pruritic [Unknown]
  - Wrong technique in drug usage process [Unknown]
